FAERS Safety Report 12222933 (Version 1)
Quarter: 2016Q1

REPORT INFORMATION
  Report Type: Spontaneous
  Country: US (occurrence: US)
  Receive Date: 20160330
  Receipt Date: 20160330
  Transmission Date: 20160526
  Serious: No
  Sender: FDA-Public Use
  Company Number: US-PERRIGO-15US006980

PATIENT
  Age: 90 Year
  Sex: Female
  Weight: 49.89 kg

DRUGS (2)
  1. ACETAMINOPHEN. [Suspect]
     Active Substance: ACETAMINOPHEN
     Indication: ARTHRALGIA
     Dosage: 650 MG, PRN
     Route: 048
     Dates: end: 20150624
  2. ACETAMINOPHEN. [Suspect]
     Active Substance: ACETAMINOPHEN
     Dosage: 650 MG, EVERY 8 HOURS
     Route: 048
     Dates: start: 20150625

REACTIONS (3)
  - Incorrect dose administered [Unknown]
  - Expired product administered [Unknown]
  - No adverse event [Unknown]

NARRATIVE: CASE EVENT DATE: 20140401
